FAERS Safety Report 7439468-5 (Version None)
Quarter: 2011Q2

REPORT INFORMATION
  Report Type: 
  Country: None (occurrence: None)
  Receive Date: 20110427
  Receipt Date: 20110426
  Transmission Date: 20111010
  Serious: Yes (Hospitalization, Other)
  Sender: FDA-Public Use
  Company Number: US-RB-024644-11

PATIENT
  Age: 58 Year
  Sex: Female

DRUGS (1)
  1. MUCINEX DM [Suspect]
     Dosage: PATIENT TOOK ONE TABLET WITH A FULL GLASS OF WATER AT 1AM.
     Route: 048

REACTIONS (5)
  - HYPERTENSION [None]
  - DIZZINESS [None]
  - CHEST PAIN [None]
  - MYDRIASIS [None]
  - FEELING ABNORMAL [None]
